FAERS Safety Report 6969302-9 (Version None)
Quarter: 2010Q3

REPORT INFORMATION
  Report Type: 
  Country: None (occurrence: None)
  Receive Date: 20100907
  Receipt Date: 20100901
  Transmission Date: 20110219
  Serious: Yes (Death)
  Sender: FDA-Public Use
  Company Number: CA-ELI_LILLY_AND_COMPANY-CA201009000603

PATIENT
  Age: 40 Year
  Sex: Male

DRUGS (1)
  1. XIGRIS [Suspect]
     Dosage: 20 MG, UNK

REACTIONS (1)
  - DEATH [None]
